FAERS Safety Report 6576390-0 (Version None)
Quarter: 2010Q1

REPORT INFORMATION
  Report Type: 
  Country: None (occurrence: None)
  Receive Date: 20100210
  Receipt Date: 20100105
  Transmission Date: 20100710
  Serious: Yes (Death)
  Sender: FDA-Public Use
  Company Number: US-TYCO HEALTHCARE/MALLINCKRODT-T201000270

PATIENT
  Age: 38 Year
  Sex: Male

DRUGS (1)
  1. OXYCODONE HCL [Suspect]
     Route: 048

REACTIONS (1)
  - CARDIO-RESPIRATORY ARREST [None]
